FAERS Safety Report 13338470 (Version 1)
Quarter: 2017Q1

REPORT INFORMATION
  Report Type: Spontaneous
  Country: US (occurrence: US)
  Receive Date: 20170315
  Receipt Date: 20170315
  Transmission Date: 20170428
  Serious: No
  Sender: FDA-Public Use
  Company Number: US-LPDUSPRD-20160844

PATIENT
  Sex: Female

DRUGS (1)
  1. ESTRADIOL VALERATE INJECTION, USP (0872-05) [Suspect]
     Active Substance: ESTRADIOL VALERATE
     Dosage: 6 MG
     Route: 065
     Dates: start: 201510, end: 201607

REACTIONS (2)
  - Malaise [Unknown]
  - Withdrawal syndrome [Unknown]

NARRATIVE: CASE EVENT DATE: 201607
